FAERS Safety Report 12157852 (Version 1)
Quarter: 2016Q1

REPORT INFORMATION
  Report Type: Spontaneous
  Country: US (occurrence: None)
  Receive Date: 20160307
  Receipt Date: 20160307
  Transmission Date: 20160526
  Serious: Yes (Life-Threatening, Congenital Anomaly)
  Sender: FDA-Public Use
  Company Number: None

PATIENT
  Age: 51 Year
  Sex: Female
  Weight: 62.6 kg

DRUGS (2)
  1. RESCUE ALBUTEROL INHALER [Concomitant]
  2. ZITHROMAX [Suspect]
     Active Substance: AZITHROMYCIN DIHYDRATE
     Indication: INFLUENZA
     Dosage: 500MG DAY 1, 250MG DAYS 2-5 ONCE DAILY TAKEN BY MOUTH
     Route: 048
     Dates: start: 20141022, end: 20141026

REACTIONS (2)
  - Ventricular extrasystoles [None]
  - Arrhythmia [None]

NARRATIVE: CASE EVENT DATE: 20141026
